FAERS Safety Report 9851153 (Version 1)
Quarter: 2014Q1

REPORT INFORMATION
  Report Type: Spontaneous
  Country: US (occurrence: US)
  Receive Date: 20140128
  Receipt Date: 20140128
  Transmission Date: 20141002
  Serious: No
  Sender: FDA-Public Use
  Company Number: US-009507513-1401USA013042

PATIENT
  Age: 35 Year
  Sex: Male
  Weight: 63.49 kg

DRUGS (2)
  1. CLARITIN [Suspect]
     Indication: SNEEZING
     Dosage: 10 MG, ONCE
     Route: 048
     Dates: start: 201310, end: 201310
  2. CLARITIN [Suspect]
     Indication: NASAL CONGESTION

REACTIONS (1)
  - Discomfort [Recovered/Resolved]
